FAERS Safety Report 8471877-8 (Version None)
Quarter: 2012Q2

REPORT INFORMATION
  Report Type: 
  Country: None (occurrence: None)
  Receive Date: 20120627
  Receipt Date: 20120619
  Transmission Date: 20120825
  Serious: Yes (Other)
  Sender: FDA-Public Use
  Company Number: US-ABBOTT-12P-163-0931530-00

PATIENT
  Sex: Male

DRUGS (5)
  1. HUMIRA [Suspect]
     Dates: start: 20120101
  2. FLOMAX [Concomitant]
     Indication: PRODUCT USED FOR UNKNOWN INDICATION
     Dosage: ONCE DAILY
     Route: 048
  3. VITAMIN D [Concomitant]
     Indication: PRODUCT USED FOR UNKNOWN INDICATION
     Dosage: ONCE DAILY
     Route: 048
  4. HUMIRA [Suspect]
     Indication: PSORIASIS
     Dates: start: 20090201, end: 20120501
  5. ASPIRIN [Concomitant]
     Indication: PRODUCT USED FOR UNKNOWN INDICATION
     Dosage: ONCE DAILY
     Route: 048

REACTIONS (10)
  - MYOCARDIAL INFARCTION [None]
  - COMPUTERISED TOMOGRAM ABNORMAL [None]
  - CROHN'S DISEASE [None]
  - GENERAL PHYSICAL HEALTH DETERIORATION [None]
  - POSITRON EMISSION TOMOGRAM ABNORMAL [None]
  - PNEUMONIA BACTERIAL [None]
  - BLOOD CHOLESTEROL ABNORMAL [None]
  - DYSPNOEA [None]
  - LUNG DISORDER [None]
  - SURGERY [None]
